FAERS Safety Report 22282946 (Version 1)
Quarter: 2023Q2

REPORT INFORMATION
  Report Type: Spontaneous
  Country: US (occurrence: US)
  Receive Date: 20230504
  Receipt Date: 20230504
  Transmission Date: 20230722
  Serious: Yes (Hospitalization, Other)
  Sender: FDA-Public Use
  Company Number: US-Accord-356048

PATIENT
  Age: 69 Year
  Sex: Male

DRUGS (5)
  1. LEVOTHYROXINE [Suspect]
     Active Substance: LEVOTHYROXINE
     Dosage: 60 TABLETS OF 150 UG LEVOTHYROXINE
  2. HYDROCORTISONE [Concomitant]
     Active Substance: HYDROCORTISONE
     Dosage: 20 MG IN THE MORNING AND 10 MG IN THE AFTERNOON
  3. TESTOSTERONE [Concomitant]
     Active Substance: TESTOSTERONE
     Dosage: EVERY TWO WEEKS
     Route: 030
  4. BUPROPION HYDROCHLORIDE [Concomitant]
     Active Substance: BUPROPION HYDROCHLORIDE
     Indication: Depression
  5. ENALAPRIL [Concomitant]
     Active Substance: ENALAPRIL
     Indication: Hypertension

REACTIONS (5)
  - Intentional overdose [Unknown]
  - Sinus tachycardia [Recovering/Resolving]
  - Hepatic enzyme increased [Recovered/Resolved]
  - Suicide attempt [Unknown]
  - Thyroid hormones increased [Recovered/Resolved]
